FAERS Safety Report 7470404-1 (Version None)
Quarter: 2011Q2

REPORT INFORMATION
  Report Type: 
  Country: None (occurrence: None)
  Receive Date: 20110510
  Receipt Date: 20110128
  Transmission Date: 20111010
  Serious: Yes (Other)
  Sender: FDA-Public Use
  Company Number: US-BAYER-2011-038267

PATIENT
  Age: 22 Year
  Sex: Female
  Weight: 102 kg

DRUGS (11)
  1. ASCORBIC ACID [Concomitant]
  2. YAZ [Suspect]
     Indication: ACNE
  3. YASMIN [Suspect]
     Indication: CONTRACEPTION
     Dosage: UNK
     Dates: start: 20060101, end: 20080101
  4. YAZ [Suspect]
     Indication: CONTRACEPTION
     Dosage: UNK
     Dates: start: 20060101, end: 20080101
  5. YASMIN [Suspect]
     Indication: ACNE
  6. IBUPROFEN (ADVIL) [Concomitant]
  7. YAZ [Suspect]
     Indication: PREMENSTRUAL SYNDROME
  8. ACETAMINOPHEN [Concomitant]
  9. YASMIN [Suspect]
     Indication: PREMENSTRUAL SYNDROME
  10. MIGRAINE MEDICATIONS [Concomitant]
     Dosage: UNK
     Dates: start: 20010101
  11. IBUPROFEN [Concomitant]

REACTIONS (4)
  - ABDOMINAL DISCOMFORT [None]
  - IRRITABLE BOWEL SYNDROME [None]
  - CHOLECYSTECTOMY [None]
  - UNEVALUABLE EVENT [None]
